FAERS Safety Report 6236420-2 (Version None)
Quarter: 2009Q2

REPORT INFORMATION
  Report Type: 
  Country: None (occurrence: None)
  Receive Date: 20090619
  Receipt Date: 20090611
  Transmission Date: 20091009
  Serious: Yes (Other)
  Sender: FDA-Public Use
  Company Number: US-ASTRAZENECA-2009UW03739

PATIENT
  Age: 614 Month
  Sex: Male
  Weight: 98.4 kg

DRUGS (4)
  1. SEROQUEL [Suspect]
     Indication: DEPRESSION
     Route: 048
     Dates: start: 20070101, end: 20070901
  2. ABILIFY [Concomitant]
  3. GEODON [Concomitant]
  4. RISPERDAL [Concomitant]
     Dates: start: 20040101, end: 20061201

REACTIONS (7)
  - ACCIDENT AT WORK [None]
  - CONCUSSION [None]
  - EXTRAPYRAMIDAL DISORDER [None]
  - PHYSICAL ASSAULT [None]
  - POST-TRAUMATIC STRESS DISORDER [None]
  - TRAUMATIC BRAIN INJURY [None]
  - TYPE 2 DIABETES MELLITUS [None]
